FAERS Safety Report 4928724-8 (Version None)
Quarter: 2006Q1

REPORT INFORMATION
  Report Type: 
  Country: None (occurrence: None)
  Receive Date: 20060301
  Receipt Date: 20060220
  Transmission Date: 20060701
  Serious: Yes (Hospitalization)
  Sender: FDA-Public Use
  Company Number: NO-JNJFOC-20040102364

PATIENT
  Sex: Male

DRUGS (11)
  1. REMICADE [Suspect]
     Route: 042
  2. REMICADE [Suspect]
     Indication: ANKYLOSING SPONDYLITIS
     Route: 042
  3. COAPROVEL [Suspect]
     Route: 048
  4. COAPROVEL [Suspect]
     Indication: HYPERTENSION
     Route: 048
  5. VOLTAREN [Suspect]
     Indication: ANTIINFLAMMATORY THERAPY
     Route: 054
  6. PREDNISOLONE [Suspect]
     Indication: ANKYLOSING SPONDYLITIS
     Route: 048
  7. METHOTREXATE [Suspect]
     Indication: ANKYLOSING SPONDYLITIS
     Route: 048
  8. NEXIUM [Concomitant]
     Route: 048
  9. INSULIN INSULATARD NPH NORDISK [Concomitant]
     Route: 058
  10. FOSAMAX [Concomitant]
     Route: 048
  11. FOLIC ACID [Concomitant]
     Route: 048

REACTIONS (3)
  - PALPITATIONS [None]
  - RENAL FAILURE [None]
  - SEPSIS [None]
